FAERS Safety Report 5719654-2 (Version None)
Quarter: 2008Q2

REPORT INFORMATION
  Report Type: 
  Country: None (occurrence: None)
  Receive Date: 20080423
  Receipt Date: 20070518
  Transmission Date: 20081010
  Serious: Yes (Life-Threatening, Hospitalization)
  Sender: FDA-Public Use
  Company Number: 236934

PATIENT
  Age: 55 Year
  Sex: Male

DRUGS (14)
  1. AVASTIN [Suspect]
     Indication: NON-SMALL CELL LUNG CANCER
     Dosage: 431 MG
     Dates: start: 20060418
  2. ATIVAN [Concomitant]
  3. CEPACOL SORE THROAT REGULAR STRENGTH LOZENGES (MENTHOL) [Concomitant]
  4. CHLORASEPTIC THROAT SPRAY (PHENOL) [Concomitant]
  5. KYTRIL [Concomitant]
  6. MORPHINE [Concomitant]
  7. NEXIUM [Concomitant]
  8. SOLU-MEDROL [Concomitant]
  9. TYLENOL SUPPOSITORY (ACETAMINOPHEN) [Concomitant]
  10. VASOTEC [Concomitant]
  11. DEXTROSE (DEXTROSE) [Concomitant]
  12. SALINE (SODIUM CHLORIDE) [Concomitant]
  13. INVANZ (ERTAPENEM SODIUM) [Concomitant]
  14. NEBULIZER (UNK INGREDIENTS) (RESPIRATORY TREATMENTS AND DEVICES) [Concomitant]

REACTIONS (1)
  - LARGE INTESTINE PERFORATION [None]
